FAERS Safety Report 8977187 (Version 1)
Quarter: 2012Q4

REPORT INFORMATION
  Report Type: 
  Country: US (occurrence: US)
  Receive Date: 20121220
  Receipt Date: 20121220
  Transmission Date: 20130627
  Serious: No
  Sender: FDA-Public Use
  Company Number: US-BIOGENIDEC-2012BI060317

PATIENT
  Age: 43 Year
  Sex: Female

DRUGS (2)
  1. TYSABRI [Suspect]
     Indication: MULTIPLE SCLEROSIS
     Route: 042
     Dates: start: 20090226, end: 20110420
  2. TYSABRI [Suspect]
     Indication: MULTIPLE SCLEROSIS
     Route: 042
     Dates: start: 20120404

REACTIONS (7)
  - Dissociation [Recovered/Resolved]
  - Balance disorder [Recovered/Resolved]
  - Migraine [Recovered/Resolved]
  - Headache [Recovered/Resolved]
  - Nausea [Recovered/Resolved]
  - Dizziness [Recovered/Resolved]
  - Multiple sclerosis relapse [Recovered/Resolved]
